FAERS Safety Report 13332062 (Version 4)
Quarter: 2017Q2

REPORT INFORMATION
  Report Type: Spontaneous
  Country: JP (occurrence: JP)
  Receive Date: 20170313
  Receipt Date: 20170414
  Transmission Date: 20170830
  Serious: Yes (Death, Hospitalization, Other)
  Sender: FDA-Public Use
  Company Number: JP-UCBSA-2017009094

PATIENT
  Age: 87 Year
  Sex: Female
  Weight: 37 kg

DRUGS (16)
  1. TRAZENTA [Concomitant]
     Active Substance: LINAGLIPTIN
     Indication: CARDIAC FAILURE
     Dosage: 5 MG, ONCE DAILY (QD)
     Route: 048
  2. SPIRONOLACTONE. [Concomitant]
     Active Substance: SPIRONOLACTONE
     Indication: CARDIAC FAILURE
     Dosage: 25 MG, ONCE DAILY (QD)
     Route: 048
  3. LANSOPRAZOLE. [Concomitant]
     Active Substance: LANSOPRAZOLE
     Indication: PROPHYLAXIS
     Dosage: 15 MG, ONCE DAILY (QD)
     Route: 048
  4. DIGILANOGEN C (DESLANOSIDE) [Suspect]
     Active Substance: DESLANOSIDE
     Indication: CARDIAC FAILURE
     Dosage: 0.2 MG, ONCE DAILY (QD)
     Route: 030
     Dates: start: 20170227, end: 20170227
  5. ELIQUIS [Concomitant]
     Active Substance: APIXABAN
     Indication: ATRIAL FIBRILLATION
     Dosage: 2.5 MG, 2X/DAY (BID)
     Route: 048
  6. ALEVIATIN [Suspect]
     Active Substance: PHENYTOIN SODIUM
     Indication: PROPHYLAXIS
     Dosage: 1 G, 3X/DAY (TID)
     Route: 048
  7. CEFTRIAXONE SODIUM. [Concomitant]
     Active Substance: CEFTRIAXONE SODIUM
     Indication: PNEUMONIA
     Dosage: 1 G, 2X/DAY (BID)
     Route: 041
     Dates: start: 20170213, end: 20170217
  8. BUFFERIN [Concomitant]
     Active Substance: ASPIRIN
     Indication: ATRIAL FIBRILLATION
     Dosage: 81 MG, ONCE DAILY (QD)
     Route: 048
  9. VIMPAT [Suspect]
     Active Substance: LACOSAMIDE
     Indication: OFF LABEL USE
     Dosage: 100 MG, 2X/DAY (BID)
     Route: 048
     Dates: start: 20170301, end: 20170303
  10. VIMPAT [Suspect]
     Active Substance: LACOSAMIDE
     Indication: STATUS EPILEPTICUS
     Dosage: 200 MG, 2X/DAY (BID)
     Route: 048
     Dates: end: 20170228
  11. LANDSEN [Suspect]
     Active Substance: CLONAZEPAM
     Indication: PROPHYLAXIS
     Dosage: 0.33 G, 3X/DAY (TID)
     Route: 048
  12. FUROSEMIDE. [Concomitant]
     Active Substance: FUROSEMIDE
     Indication: CARDIAC FAILURE
     Dosage: 40 MG, ONCE DAILY (QD)
     Route: 048
  13. ISOSORBIDE MONONITRATE. [Concomitant]
     Active Substance: ISOSORBIDE MONONITRATE
     Indication: CARDIAC FAILURE
     Dosage: 20 MG, ONCE DAILY (QD)
     Route: 048
  14. MYSTAN [Suspect]
     Active Substance: CLOBAZAM
     Indication: PROPHYLAXIS
     Dosage: 5 MG, 2X/DAY (BID)
     Route: 048
  15. MEROPENEM. [Concomitant]
     Active Substance: MEROPENEM
     Indication: PNEUMONIA
     Dosage: 0.5 G, 2X/DAY (BID)
     Route: 041
     Dates: start: 20170217, end: 20170227
  16. FUROSEMIDE. [Concomitant]
     Active Substance: FUROSEMIDE
     Indication: PRODUCT USED FOR UNKNOWN INDICATION
     Route: 042

REACTIONS (5)
  - Atrioventricular block complete [Fatal]
  - Pulmonary congestion [None]
  - Cerebral infarction [Unknown]
  - Off label use [Unknown]
  - Cardiac arrest [None]

NARRATIVE: CASE EVENT DATE: 20170209
